FAERS Safety Report 7733720-1 (Version None)
Quarter: 2011Q3

REPORT INFORMATION
  Report Type: 
  Country: None (occurrence: None)
  Receive Date: 20110907
  Receipt Date: 20110829
  Transmission Date: 20111222
  Serious: Yes (Other)
  Sender: FDA-Public Use
  Company Number: FR-ASTRAZENECA-2011SE52562

PATIENT
  Age: 56 Year
  Sex: Male

DRUGS (7)
  1. ALLOPURINOL [Suspect]
     Route: 048
     Dates: start: 20110101
  2. VOLTAREN [Suspect]
     Route: 048
     Dates: start: 20110101
  3. ALLOPURINOL [Suspect]
     Indication: SYNOVIAL FLUID CRYSTAL
     Route: 048
     Dates: end: 20110101
  4. STRUCTUM [Concomitant]
  5. NEXIUM [Suspect]
     Route: 048
     Dates: start: 20080101, end: 20110101
  6. NEXIUM [Suspect]
     Route: 048
     Dates: start: 20110101
  7. VOLTAREN [Suspect]
     Indication: ARTHROPATHY
     Route: 048
     Dates: start: 20080101, end: 20110101

REACTIONS (2)
  - BLOOD CREATINE PHOSPHOKINASE INCREASED [None]
  - PAIN [None]
